FAERS Safety Report 15636947 (Version 1)
Quarter: 2018Q4

REPORT INFORMATION
  Report Type: Spontaneous
  Country: US (occurrence: US)
  Receive Date: 20181114
  Receipt Date: 20181114
  Transmission Date: 20190205
  Serious: No
  Sender: FDA-Public Use
  Company Number: None

PATIENT
  Age: 70 Year
  Sex: Female

DRUGS (2)
  1. MOBIC [Suspect]
     Active Substance: MELOXICAM
  2. SIMPONI [Suspect]
     Active Substance: GOLIMUMAB
     Dates: start: 201810

REACTIONS (2)
  - Rash [None]
  - Drug hypersensitivity [None]

NARRATIVE: CASE EVENT DATE: 20181015
